FAERS Safety Report 12081301 (Version 1)
Quarter: 2016Q1

REPORT INFORMATION
  Report Type: Spontaneous
  Country: US (occurrence: US)
  Receive Date: 20160216
  Receipt Date: 20160216
  Transmission Date: 20160526
  Serious: No
  Sender: FDA-Public Use
  Company Number: US-TARO-2015TAR01172

PATIENT
  Sex: Male
  Weight: 81.63 kg

DRUGS (2)
  1. DESONIDE LOTION 0.05% [Suspect]
     Active Substance: DESONIDE
     Indication: ACTINIC KERATOSIS
     Dosage: APPLIES THIN AMOUNT, 1X/DAY
     Route: 061
     Dates: end: 20151217
  2. UNSPECIFIED CONCOMITANT MEDICATION(S) [Concomitant]
     Dosage: UNK

REACTIONS (4)
  - Incorrect drug administration duration [Unknown]
  - Dry skin [Unknown]
  - Drug ineffective for unapproved indication [Unknown]
  - Inappropriate schedule of drug administration [Unknown]
